FAERS Safety Report 8434796-9 (Version None)
Quarter: 2012Q2

REPORT INFORMATION
  Report Type: 
  Country: None (occurrence: None)
  Receive Date: 20120608
  Receipt Date: 20120608
  Transmission Date: 20120825
  Serious: No
  Sender: FDA-Public Use
  Company Number: None

PATIENT
  Sex: Female

DRUGS (2)
  1. SODIUM CHLORIDE [Suspect]
  2. DEXTROSE [Suspect]

REACTIONS (4)
  - MEDICATION ERROR [None]
  - PRODUCT COMPOUNDING QUALITY ISSUE [None]
  - MALAISE [None]
  - HYPERNATRAEMIA [None]
